FAERS Safety Report 11149275 (Version 1)
Quarter: 2015Q2

REPORT INFORMATION
  Report Type: Spontaneous
  Country: JP (occurrence: JP)
  Receive Date: 20150529
  Receipt Date: 20150529
  Transmission Date: 20150821
  Serious: Yes (Hospitalization, Other)
  Sender: FDA-Public Use
  Company Number: JP-BAYER-2015-259398

PATIENT
  Age: 65 Year
  Sex: Male

DRUGS (1)
  1. ACETYLSALICYLIC ACID({=100 MG) [Suspect]
     Active Substance: ASPIRIN
     Route: 048

REACTIONS (3)
  - Hypopituitarism [Recovering/Resolving]
  - Pituitary haemorrhage [Recovering/Resolving]
  - Secondary adrenocortical insufficiency [Recovering/Resolving]
